FAERS Safety Report 20102026 (Version 1)
Quarter: 2021Q4

REPORT INFORMATION
  Report Type: Spontaneous
  Country: CA (occurrence: CA)
  Receive Date: 20211123
  Receipt Date: 20211123
  Transmission Date: 20220303
  Serious: Yes (Death)
  Sender: FDA-Public Use
  Company Number: CA-PFIZER INC-202101547633

PATIENT
  Age: 40 Year
  Sex: Female
  Weight: 80 kg

DRUGS (8)
  1. MIDAZOLAM [Suspect]
     Active Substance: MIDAZOLAM
     Dosage: UNK
  2. DIAZEPAM [Suspect]
     Active Substance: DIAZEPAM
     Dosage: UNK
  3. FENTANYL CITRATE [Suspect]
     Active Substance: FENTANYL CITRATE
     Dosage: UNK
  4. ONDANSETRON HCL [Suspect]
     Active Substance: ONDANSETRON HYDROCHLORIDE
     Dosage: UNK
  5. AMPHETAMINE [Suspect]
     Active Substance: AMPHETAMINE
     Dosage: UNK
  6. KETAMINE [Suspect]
     Active Substance: KETAMINE
     Dosage: UNK
  7. METHAMPHETAMINE [Suspect]
     Active Substance: METHAMPHETAMINE
     Dosage: UNK
  8. NALOXONE [Suspect]
     Active Substance: NALOXONE
     Dosage: UNK

REACTIONS (4)
  - Intestinal infarction [Fatal]
  - Hepatic necrosis [Fatal]
  - Renal infarct [Fatal]
  - Toxicity to various agents [Fatal]
